FAERS Safety Report 9853475 (Version 1)
Quarter: 2014Q1

REPORT INFORMATION
  Report Type: Report from Study
  Country: JP (occurrence: JP)
  Receive Date: 20140129
  Receipt Date: 20140129
  Transmission Date: 20141002
  Serious: Yes (Death)
  Sender: FDA-Public Use
  Company Number: JP-GLAXOSMITHKLINE-B0770884A

PATIENT
  Age: 36 Year
  Sex: Female
  Weight: 67 kg

DRUGS (6)
  1. VOLIBRIS [Suspect]
     Indication: PULMONARY ARTERIAL HYPERTENSION
     Dosage: 5MG PER DAY
     Route: 048
     Dates: start: 20111118, end: 20111201
  2. VOLIBRIS [Suspect]
     Indication: PULMONARY ARTERIAL HYPERTENSION
     Dosage: 1.25MG PER DAY
     Route: 048
     Dates: start: 20111202, end: 20120105
  3. FLOLAN [Suspect]
     Indication: PULMONARY ARTERIAL HYPERTENSION
     Route: 042
     Dates: end: 20120105
  4. REVATIO [Suspect]
     Indication: PULMONARY ARTERIAL HYPERTENSION
     Route: 048
     Dates: end: 20120105
  5. BIOFERMIN [Concomitant]
     Indication: DYSCHEZIA
     Route: 048
     Dates: end: 20120105
  6. COVERSYL [Concomitant]
     Indication: PULMONARY ARTERIAL HYPERTENSION
     Route: 048
     Dates: end: 20120105

REACTIONS (2)
  - Pulmonary haemorrhage [Fatal]
  - Oedema [Not Recovered/Not Resolved]
